FAERS Safety Report 7949815-3 (Version None)
Quarter: 2011Q4

REPORT INFORMATION
  Report Type: 
  Country: None (occurrence: None)
  Receive Date: 20111130
  Receipt Date: 20111121
  Transmission Date: 20120403
  Serious: Yes (Other)
  Sender: FDA-Public Use
  Company Number: US-MERCK-1110USA00727

PATIENT
  Age: 86 Year
  Sex: Female

DRUGS (4)
  1. DIGOXIN [Concomitant]
     Route: 065
  2. COZAAR [Suspect]
     Route: 048
  3. COZAAR [Suspect]
     Indication: HYPERTENSION
     Route: 048
  4. ARMOUR THYROID TABLETS [Concomitant]
     Route: 065

REACTIONS (6)
  - ADVERSE DRUG REACTION [None]
  - PARALYSIS [None]
  - MUSCULOSKELETAL STIFFNESS [None]
  - ANAPHYLACTIC SHOCK [None]
  - MALAISE [None]
  - PAIN [None]
